FAERS Safety Report 9398257 (Version 3)
Quarter: 2015Q1

REPORT INFORMATION
  Report Type: Spontaneous
  Country: US (occurrence: US)
  Receive Date: 20130712
  Receipt Date: 20150210
  Transmission Date: 20150721
  Serious: Yes (Hospitalization, Other)
  Sender: FDA-Public Use
  Company Number: US-GLAXOSMITHKLINE-A1032445A

PATIENT
  Sex: Male

DRUGS (2)
  1. PROMACTA [Suspect]
     Active Substance: ELTROMBOPAG OLAMINE
     Dosage: 50 MG, QD
     Route: 048
     Dates: start: 20111007
  2. PROMACTA [Suspect]
     Active Substance: ELTROMBOPAG OLAMINE
     Indication: THROMBOCYTOPENIA
     Dosage: 50 MG, QD
     Route: 048

REACTIONS (2)
  - Haemorrhage [Unknown]
  - Hospitalisation [Not Recovered/Not Resolved]
